FAERS Safety Report 6239891-0 (Version None)
Quarter: 2009Q2

REPORT INFORMATION
  Report Type: 
  Country: None (occurrence: None)
  Receive Date: 20090618
  Receipt Date: 20090618
  Transmission Date: 20091009
  Serious: No
  Sender: FDA-Public Use
  Company Number: None

PATIENT
  Sex: Female
  Weight: 104.3273 kg

DRUGS (6)
  1. ZICAMCOLD REMEDY GEL SWABS HOMEOPATHIC ZICAM [Suspect]
     Indication: NASOPHARYNGITIS
     Dosage: SINGLE SWAB ONCE NASAL
     Route: 045
     Dates: start: 20090101, end: 20090115
  2. ESTRADIOL VALERATE [Concomitant]
  3. VITAMIN D [Concomitant]
  4. EQUATE NASAL SALINE [Concomitant]
  5. EQUATE DAYTIME COLD [Concomitant]
  6. NYQUIL [Concomitant]

REACTIONS (4)
  - ANOSMIA [None]
  - BURNING SENSATION [None]
  - DRUG INEFFECTIVE [None]
  - SINUSITIS [None]
